FAERS Safety Report 9674795 (Version 1)
Quarter: 2013Q4

REPORT INFORMATION
  Report Type: Spontaneous
  Country: US (occurrence: None)
  Receive Date: 20131106
  Receipt Date: 20131106
  Transmission Date: 20140711
  Serious: Yes (Hospitalization)
  Sender: FDA-Public Use
  Company Number: None

PATIENT
  Age: 65 Year
  Sex: Female
  Weight: 68.04 kg

DRUGS (13)
  1. BORTEZOMIB [Suspect]
     Indication: GRAFT VERSUS HOST DISEASE
     Dosage: 1.35MG  SQ  X1
     Route: 058
     Dates: start: 20130826
  2. ACYCLOVIR [Concomitant]
  3. MEPRON [Concomitant]
  4. NEXIUM [Concomitant]
  5. FOLIC ACID [Concomitant]
  6. SYNTHROID [Concomitant]
  7. ATIVAN [Concomitant]
  8. LOPRESSOR [Concomitant]
  9. NOXAFIL [Concomitant]
  10. DELTASONE [Concomitant]
  11. TACROLIMUS [Concomitant]
  12. AMBIEN [Concomitant]
  13. ACTIGALL [Concomitant]

REACTIONS (9)
  - Diarrhoea [None]
  - Nausea [None]
  - Vomiting [None]
  - Cough [None]
  - Hypotension [None]
  - Escherichia urinary tract infection [None]
  - Electrolyte imbalance [None]
  - Human rhinovirus test positive [None]
  - Hyponatraemia [None]
